FAERS Safety Report 19241457 (Version 2)
Quarter: 2021Q2

REPORT INFORMATION
  Report Type: Spontaneous
  Country: US (occurrence: US)
  Receive Date: 20210511
  Receipt Date: 20210607
  Transmission Date: 20210717
  Serious: No
  Sender: FDA-Public Use
  Company Number: US-ASTRAZENECA-2021A368448

PATIENT
  Sex: Female

DRUGS (1)
  1. BYDUREON BCISE [Suspect]
     Active Substance: EXENATIDE
     Route: 065

REACTIONS (13)
  - Wrong technique in device usage process [Unknown]
  - Tremor [Unknown]
  - Device leakage [Unknown]
  - Blood glucose increased [Unknown]
  - Memory impairment [Unknown]
  - Walking aid user [Unknown]
  - Eye disorder [Unknown]
  - Gait disturbance [Unknown]
  - Urinary tract infection [Unknown]
  - Limb discomfort [Unknown]
  - Fall [Unknown]
  - Back injury [Unknown]
  - Hypokinesia [Unknown]

NARRATIVE: CASE EVENT DATE: 20210423
